FAERS Safety Report 11583240 (Version 1)
Quarter: 2015Q4

REPORT INFORMATION
  Report Type: Spontaneous
  Country: BR (occurrence: BR)
  Receive Date: 20151001
  Receipt Date: 20151001
  Transmission Date: 20160304
  Serious: Yes (Other)
  Sender: FDA-Public Use
  Company Number: BR-ROCHE-1638502

PATIENT
  Age: 53 Year
  Sex: Male
  Weight: 115 kg

DRUGS (6)
  1. GLIBENCLAMIDE [Concomitant]
     Active Substance: GLYBURIDE
     Indication: DIABETES MELLITUS
     Route: 065
  2. VALIUM [Suspect]
     Active Substance: DIAZEPAM
     Indication: EMOTIONAL DISTRESS
     Route: 065
     Dates: start: 2000
  3. RIVOTRIL [Suspect]
     Active Substance: CLONAZEPAM
     Indication: EMOTIONAL DISTRESS
     Dosage: AS REQUIRED
     Route: 065
  4. RIVOTRIL [Suspect]
     Active Substance: CLONAZEPAM
     Indication: ANXIETY
     Route: 065
     Dates: start: 2000
  5. CAPTOPRIL. [Concomitant]
     Active Substance: CAPTOPRIL
     Indication: HYPERTENSION
     Route: 065
  6. ALGINAC [Concomitant]
     Active Substance: CYANOCOBALAMIN\DICLOFENAC SODIUM\PYRIDOXINE HYDROCHLORIDE\THIAMINE MONONITRATE
     Indication: PAIN
     Route: 065

REACTIONS (8)
  - Blood pressure increased [Unknown]
  - Blood pressure decreased [Unknown]
  - Nervousness [Unknown]
  - Lung neoplasm malignant [Unknown]
  - Oesophageal varices haemorrhage [Unknown]
  - Fall [Unknown]
  - Pneumonia [Not Recovered/Not Resolved]
  - Erysipelas [Unknown]

NARRATIVE: CASE EVENT DATE: 2000
